FAERS Safety Report 19690137 (Version 1)
Quarter: 2021Q3

REPORT INFORMATION
  Report Type: Spontaneous
  Country: US (occurrence: US)
  Receive Date: 20210811
  Receipt Date: 20210811
  Transmission Date: 20211014
  Serious: No
  Sender: FDA-Public Use
  Company Number: None

PATIENT
  Age: 81 Year
  Sex: Male

DRUGS (1)
  1. TREMFYA [Suspect]
     Active Substance: GUSELKUMAB
     Indication: PSORIASIS
     Dosage: OTHER FREQUENCY:ON WEEK 0, WEEK 4, THEN EVERY 8 WEEKS AS DIRECTED?
     Route: 058
     Dates: start: 201811

REACTIONS (1)
  - Sepsis [None]
